FAERS Safety Report 14567229 (Version 4)
Quarter: 2022Q1

REPORT INFORMATION
  Report Type: Spontaneous
  Country: PL (occurrence: PL)
  Receive Date: 20180223
  Receipt Date: 20220318
  Transmission Date: 20220423
  Serious: Yes (Other)
  Sender: FDA-Public Use
  Company Number: PL-AUROBINDO-AUR-APL-2018-009882

PATIENT
  Age: 19 Year
  Sex: Male

DRUGS (7)
  1. LEVETIRACETAM [Suspect]
     Active Substance: LEVETIRACETAM
     Indication: Partial seizures
     Dosage: 1500 MILLIGRAM, ONCE A DAY
     Route: 065
     Dates: start: 20160101
  2. LEVETIRACETAM [Suspect]
     Active Substance: LEVETIRACETAM
     Indication: Psychomotor retardation
     Dosage: UPTO 1500 MG DAILY WAS ADDED
     Route: 065
     Dates: start: 2016
  3. LEVETIRACETAM [Suspect]
     Active Substance: LEVETIRACETAM
     Dosage: UNKNOWN DOSE ADJUSTMENT
     Route: 065
  4. LACOSAMIDE [Suspect]
     Active Substance: LACOSAMIDE
     Indication: Partial seizures
     Dosage: 300 MILLIGRAM, ONCE A DAY
     Route: 065
  5. LACOSAMIDE [Suspect]
     Active Substance: LACOSAMIDE
     Dosage: 1000 MILLIGRAM, ONCE A DAY
     Route: 065
  6. TIAPRIDE HYDROCHLORIDE [Suspect]
     Active Substance: TIAPRIDE HYDROCHLORIDE
     Indication: Partial seizures
     Dosage: 250 MILLIGRAM, ONCE A DAY
     Route: 065
     Dates: start: 20160101
  7. VALPROATE SODIUM [Suspect]
     Active Substance: VALPROATE SODIUM
     Indication: Partial seizures
     Dosage: 1000 MILLIGRAM, ONCE A DAY
     Route: 065
     Dates: start: 20160101

REACTIONS (8)
  - Partial seizures [Recovered/Resolved]
  - Loss of consciousness [Unknown]
  - Drug ineffective [Unknown]
  - Seizure [Unknown]
  - Electroencephalogram abnormal [Unknown]
  - Computerised tomogram abnormal [Unknown]
  - Off label use [Unknown]
  - Multiple-drug resistance [Unknown]
